FAERS Safety Report 4717034-X (Version None)
Quarter: 2005Q3

REPORT INFORMATION
  Report Type: 
  Country: None (occurrence: None)
  Receive Date: 20050712
  Receipt Date: 20040901
  Transmission Date: 20060218
  Serious: Yes (Other)
  Sender: FDA-Public Use
  Company Number: PHEH2004US09471

PATIENT
  Sex: 0

DRUGS (1)
  1. GLEEVEC [Suspect]
     Indication: CHRONIC MYELOID LEUKAEMIA
     Dosage: SEE IMAGE
     Route: 048

REACTIONS (3)
  - ANTINUCLEAR ANTIBODY POSITIVE [None]
  - PERICARDIAL EFFUSION [None]
  - PLEURAL EFFUSION [None]
